FAERS Safety Report 7523803-3 (Version None)
Quarter: 2011Q2

REPORT INFORMATION
  Report Type: 
  Country: None (occurrence: None)
  Receive Date: 20110603
  Receipt Date: 20110524
  Transmission Date: 20111010
  Serious: Yes (Other)
  Sender: FDA-Public Use
  Company Number: US-GENENTECH-319379

PATIENT
  Age: 67 Year
  Sex: Male

DRUGS (1)
  1. NUTROPIN [Suspect]
     Indication: HYPOPITUITARISM
     Dosage: 28 MG, UNK

REACTIONS (1)
  - CEREBROVASCULAR ACCIDENT [None]
